FAERS Safety Report 11633975 (Version 1)
Quarter: 2015Q4

REPORT INFORMATION
  Report Type: Spontaneous
  Country: US (occurrence: US)
  Receive Date: 20151015
  Receipt Date: 20151015
  Transmission Date: 20160304
  Serious: Yes (Other)
  Sender: FDA-Public Use
  Company Number: US-PFIZER INC-2015336659

PATIENT
  Age: 59 Year
  Sex: Female
  Weight: 64 kg

DRUGS (3)
  1. GLIPIZIDE. [Concomitant]
     Active Substance: GLIPIZIDE
     Indication: DIABETES MELLITUS
     Dosage: 2.5 MG, 1X/DAY
  2. GABAPENTIN. [Suspect]
     Active Substance: GABAPENTIN
     Indication: NEUROPATHY PERIPHERAL
     Dosage: 300 MG, 1X/DAY (AT BED TIME)
     Dates: start: 201506
  3. XIFAXAN [Suspect]
     Active Substance: RIFAXIMIN
     Dosage: 550 MG, 2X/DAY
     Dates: start: 201412

REACTIONS (5)
  - Headache [Unknown]
  - Nausea [Unknown]
  - Thinking abnormal [Unknown]
  - Neuropathy peripheral [Unknown]
  - Condition aggravated [Unknown]
